FAERS Safety Report 16148149 (Version 1)
Quarter: 2019Q2

REPORT INFORMATION
  Report Type: Spontaneous
  Country: US (occurrence: US)
  Receive Date: 20190402
  Receipt Date: 20190402
  Transmission Date: 20190711
  Serious: No
  Sender: FDA-Public Use
  Company Number: US-MYLANLABS-2019M1023359

PATIENT
  Sex: Female

DRUGS (3)
  1. AMNESTEEM [Suspect]
     Active Substance: ISOTRETINOIN
     Dosage: 20 MILLIGRAM
  2. AMNESTEEM [Suspect]
     Active Substance: ISOTRETINOIN
     Dosage: 40 MILLIGRAM
  3. AMNESTEEM [Suspect]
     Active Substance: ISOTRETINOIN
     Indication: PRODUCT USED FOR UNKNOWN INDICATION
     Dosage: 20 MILLIGRAM
     Route: 048

REACTIONS (2)
  - Arthralgia [Recovered/Resolved]
  - Product dispensing error [Recovered/Resolved]
